FAERS Safety Report 8352040-8 (Version None)
Quarter: 2012Q2

REPORT INFORMATION
  Report Type: 
  Country: None (occurrence: None)
  Receive Date: 20120509
  Receipt Date: 20120430
  Transmission Date: 20120825
  Serious: Yes (Hospitalization)
  Sender: FDA-Public Use
  Company Number: IMP_05877_2012

PATIENT
  Age: 83 Year
  Sex: Male

DRUGS (9)
  1. CLARITHROMYCIN [Suspect]
     Indication: PNEUMONIA
     Dosage: (500 MG BID ORAL)
     Route: 048
  2. DIGOXIN [Suspect]
     Indication: PRODUCT USED FOR UNKNOWN INDICATION
     Dosage: (0.125 MG QD ORAL)
     Route: 048
  3. ISOSORBIDE MONONITRATE [Concomitant]
  4. FUROSEMIDE [Concomitant]
  5. CAPTOPRIL [Concomitant]
  6. POTASSIUM CHLORIDE [Concomitant]
  7. SPIRONOLACTONE [Concomitant]
  8. PRAVASTATIN [Concomitant]
  9. BISOPROLOL FUMARATE [Concomitant]

REACTIONS (13)
  - BLOOD CREATININE INCREASED [None]
  - DECREASED APPETITE [None]
  - NAUSEA [None]
  - WHITE BLOOD CELL COUNT INCREASED [None]
  - DYSPNOEA EXERTIONAL [None]
  - MALAISE [None]
  - BLOOD POTASSIUM INCREASED [None]
  - COUGH [None]
  - VENTRICULAR EXTRASYSTOLES [None]
  - FATIGUE [None]
  - DIZZINESS [None]
  - HEART RATE INCREASED [None]
  - BUNDLE BRANCH BLOCK LEFT [None]
